FAERS Safety Report 13530931 (Version 1)
Quarter: 2017Q2

REPORT INFORMATION
  Report Type: Spontaneous
  Country: MQ (occurrence: FR)
  Receive Date: 20170510
  Receipt Date: 20170510
  Transmission Date: 20170830
  Serious: Yes (Death)
  Sender: FDA-Public Use
  Company Number: MQ-ASTRAZENECA-2017SE47706

PATIENT
  Sex: Female

DRUGS (1)
  1. BRILIQUE [Suspect]
     Active Substance: TICAGRELOR
     Route: 048

REACTIONS (2)
  - Vascular stent thrombosis [Fatal]
  - Product supply issue [Fatal]
